FAERS Safety Report 21324331 (Version 7)
Quarter: 2024Q3

REPORT INFORMATION
  Report Type: Report from Study
  Country: FR (occurrence: FR)
  Receive Date: 20220912
  Receipt Date: 20240919
  Transmission Date: 20241016
  Serious: Yes (Hospitalization, Other)
  Sender: NOVARTIS
  Company Number: FR-NOVARTISPH-NVSC2022FR204730

PATIENT
  Sex: Male
  Weight: 72 kg

DRUGS (9)
  1. MEKINIST [Suspect]
     Active Substance: TRAMETINIB DIMETHYL SULFOXIDE
     Indication: Metastatic malignant melanoma
     Dosage: 2 MG
     Route: 048
     Dates: start: 20220623, end: 20220911
  2. TAFINLAR [Suspect]
     Active Substance: DABRAFENIB MESYLATE
     Indication: Metastatic malignant melanoma
     Dosage: 300 MG
     Route: 048
     Dates: start: 20220623, end: 20220911
  3. ELIQUIS [Concomitant]
     Active Substance: APIXABAN
     Indication: Atrial fibrillation
     Dosage: 10 MG
     Route: 048
     Dates: start: 2018
  4. ELIQUIS [Concomitant]
     Active Substance: APIXABAN
     Indication: Arrhythmia
  5. NEBIVOLOL [Concomitant]
     Active Substance: NEBIVOLOL
     Indication: Atrial fibrillation
     Dosage: 3.75 MG
     Route: 048
     Dates: start: 2018
  6. NEBIVOLOL [Concomitant]
     Active Substance: NEBIVOLOL
     Indication: Arrhythmia
  7. DOLIPRANE [Concomitant]
     Active Substance: ACETAMINOPHEN
     Indication: Pain
     Dosage: 2000 MG
     Route: 048
     Dates: start: 20220615
  8. TRAMADOL [Concomitant]
     Active Substance: TRAMADOL\TRAMADOL HYDROCHLORIDE
     Indication: Pain
     Dosage: 50 MG
     Route: 048
     Dates: start: 20220615, end: 20220721
  9. ZOMETA [Concomitant]
     Active Substance: ZOLEDRONIC ACID
     Indication: Prophylaxis
     Dosage: 4 MG
     Route: 042
     Dates: start: 20220730, end: 20220730

REACTIONS (3)
  - Wound evisceration [Not Recovered/Not Resolved]
  - Blood creatine phosphokinase increased [Recovered/Resolved]
  - Fatigue [Recovered/Resolved]

NARRATIVE: CASE EVENT DATE: 20220704
